FAERS Safety Report 11060044 (Version 1)
Quarter: 2015Q2

REPORT INFORMATION
  Report Type: Spontaneous
  Country: DE (occurrence: DE)
  Receive Date: 20150423
  Receipt Date: 20150423
  Transmission Date: 20150821
  Serious: Yes (Hospitalization)
  Sender: FDA-Public Use
  Company Number: GXKR2015DE002135

PATIENT

DRUGS (9)
  1. SEROQUEL [Interacting]
     Active Substance: QUETIAPINE FUMARATE
     Dosage: 450 MG, QD
     Dates: start: 20061026, end: 20070414
  2. PLANUM [Concomitant]
     Active Substance: DESOGESTREL\ETHINYL ESTRADIOL
     Dosage: 20 MG, QD
     Dates: start: 20070417
  3. DONEURIN [Interacting]
     Active Substance: DOXEPIN HYDROCHLORIDE
     Dosage: 250 MG, QD
     Dates: start: 20061026
  4. LAMOTRIGIN HEXAL [Interacting]
     Active Substance: LAMOTRIGINE
     Dosage: 200 MG, QD
     Dates: start: 20061026
  5. SEROQUEL [Interacting]
     Active Substance: QUETIAPINE FUMARATE
     Dosage: 300 MG, QD
     Dates: start: 20060130, end: 20061026
  6. DONEURIN [Suspect]
     Active Substance: DOXEPIN HYDROCHLORIDE
     Dosage: 100 MG, QD
     Dates: start: 20060130, end: 20061026
  7. TAVOR [Concomitant]
     Active Substance: LORAZEPAM
     Dosage: 0.5 MG, QD
     Dates: start: 20060130, end: 20070414
  8. TAVOR [Concomitant]
     Active Substance: LORAZEPAM
     Dosage: 1.5 MG, QD
     Dates: start: 20070414, end: 20070419
  9. OXAZEPAM. [Concomitant]
     Active Substance: OXAZEPAM
     Dosage: 15 MG, QD
     Dates: start: 20070419

REACTIONS (1)
  - Pancytopenia [Recovering/Resolving]

NARRATIVE: CASE EVENT DATE: 20070412
